FAERS Safety Report 21919987 (Version 2)
Quarter: 2023Q1

REPORT INFORMATION
  Report Type: Report from Study
  Country: BY (occurrence: BY)
  Receive Date: 20230127
  Receipt Date: 20230130
  Transmission Date: 20230417
  Serious: Yes (Death, Other)
  Sender: FDA-Public Use
  Company Number: BY-MYLANLABS-2023M1009302

PATIENT
  Age: 58 Year
  Sex: Male
  Weight: 48 kg

DRUGS (9)
  1. PRETOMANID [Suspect]
     Active Substance: PRETOMANID
     Indication: Product used for unknown indication
     Dosage: 200 MILLIGRAM, QD (200 MG OD PO)
     Route: 048
     Dates: start: 20221126, end: 20230123
  2. BEDAQUILINE [Suspect]
     Active Substance: BEDAQUILINE
     Indication: Product used for unknown indication
     Dosage: 200 MILLIGRAM, Q3W (200 MG TIW PO)
     Route: 048
     Dates: start: 20221126, end: 20230123
  3. LINEZOLID [Suspect]
     Active Substance: LINEZOLID
     Indication: Product used for unknown indication
     Dosage: 600 MILLIGRAM, QD (600 MG OD PO)
     Route: 048
     Dates: start: 20221126, end: 20230123
  4. CLOFAZIMINE [Suspect]
     Active Substance: CLOFAZIMINE
     Indication: Product used for unknown indication
     Dosage: 100 MILLIGRAM, QD (100 MG OD PO)
     Route: 048
     Dates: start: 20221126, end: 20230123
  5. EMTRICITABINE\TENOFOVIR [Concomitant]
     Active Substance: EMTRICITABINE\TENOFOVIR
     Indication: HIV infection
     Dosage: UNK (300/200 MG DAILY ORALLY)
     Route: 048
     Dates: start: 20220826, end: 20230123
  6. DOLUTEGRAVIR [Concomitant]
     Active Substance: DOLUTEGRAVIR
     Indication: HIV infection
     Dosage: 50 MILLIGRAM, QD (50 MG DAILY ORALLY)
     Route: 048
     Dates: start: 20221126, end: 20230123
  7. COTRIMOXAZOLE [Concomitant]
     Active Substance: SULFAMETHOXAZOLE\TRIMETHOPRIM
     Indication: Prophylaxis
     Dosage: 960 MILLIGRAM, QD (960 MG DAILY ORALLY)
     Route: 048
     Dates: start: 20220826, end: 20230123
  8. BISOPROLOL [Concomitant]
     Active Substance: BISOPROLOL
     Indication: Tachycardia
     Dosage: 2.5 MILLIGRAM, QD (2.5 MG DAILY ORALLY)
     Route: 048
     Dates: start: 20221202, end: 20230110
  9. METOPROLOL [Concomitant]
     Active Substance: METOPROLOL
     Indication: Tachycardia
     Dosage: 2.5 MILLIGRAM, QD (2.5 MG DAILY ORALLY)
     Route: 048
     Dates: start: 20230111, end: 20230120

REACTIONS (2)
  - Cardiac failure acute [Fatal]
  - Immune reconstitution inflammatory syndrome [Unknown]

NARRATIVE: CASE EVENT DATE: 20230123
